FAERS Safety Report 8966152 (Version 1)
Quarter: 2012Q4

REPORT INFORMATION
  Report Type: 
  Country: GB (occurrence: GB)
  Receive Date: 20121214
  Receipt Date: 20121214
  Transmission Date: 20130627
  Serious: Yes (Other)
  Sender: FDA-Public Use
  Company Number: PHHY2012GB114460

PATIENT
  Sex: Male

DRUGS (2)
  1. CODEINE PHOSPHATE [Suspect]
     Indication: DIARRHOEA
     Dosage: 15 mg, QID
     Route: 065
  2. LOPERAMIDE [Concomitant]
     Indication: DIARRHOEA
     Dosage: 7 DF, approximately

REACTIONS (1)
  - Lactose intolerance [Unknown]
